FAERS Safety Report 4413423-1 (Version None)
Quarter: 2004Q2

REPORT INFORMATION
  Report Type: 
  Country: None (occurrence: None)
  Receive Date: 20040630
  Receipt Date: 20040303
  Transmission Date: 20050107
  Serious: No
  Sender: FDA-Public Use
  Company Number: 04P-163-0252198-00

PATIENT
  Age: 72 Year
  Sex: Male

DRUGS (9)
  1. HUMIRA [Suspect]
     Indication: RHEUMATOID ARTHRITIS
     Dosage: 40 MG, 1 IN 2 WK, SUBCUTANEOUS; SEE IMAGE
     Route: 058
     Dates: start: 20030101, end: 20031001
  2. HUMIRA [Suspect]
     Indication: RHEUMATOID ARTHRITIS
     Dosage: 40 MG, 1 IN 2 WK, SUBCUTANEOUS; SEE IMAGE
     Route: 058
     Dates: start: 20031125
  3. NARINE REPETABS [Concomitant]
  4. LORREL 5/10 [Concomitant]
  5. AMLODIPINE BESYLATE [Concomitant]
  6. METOPROLOL TARTRATE [Concomitant]
  7. PREDNISONE TAB [Concomitant]
  8. DIGOXIN [Concomitant]
  9. NICOTINIC ACID [Concomitant]

REACTIONS (1)
  - SINUSITIS [None]
